FAERS Safety Report 7293027-6 (Version None)
Quarter: 2011Q1

REPORT INFORMATION
  Report Type: 
  Country: None (occurrence: None)
  Receive Date: 20110203
  Receipt Date: 20110118
  Transmission Date: 20110831
  Serious: Yes (Other)
  Sender: FDA-Public Use
  Company Number: 023126

PATIENT
  Sex: Male

DRUGS (8)
  1. ZYPREXA [Concomitant]
  2. RIVOTRIL [Concomitant]
  3. SILECE [Concomitant]
  4. BIFIDOBACTERIUM BIFIDUM [Concomitant]
  5. GASTER /00706001/ [Concomitant]
  6. KEPPRA [Suspect]
     Indication: MYOCLONIC EPILEPSY
     Dosage: (1000 MG QD, 500 MG ORAL), (2000 MG QD, 500 MG ORAL), (3000 MG QD ORAL)
     Route: 048
     Dates: start: 20101019
  7. KEPPRA [Suspect]
     Indication: MYOCLONIC EPILEPSY
     Dosage: (1000 MG QD, 500 MG ORAL), (2000 MG QD, 500 MG ORAL), (3000 MG QD ORAL)
     Route: 048
     Dates: start: 20101117
  8. KEPPRA [Suspect]
     Indication: MYOCLONIC EPILEPSY
     Dosage: (1000 MG QD, 500 MG ORAL), (2000 MG QD, 500 MG ORAL), (3000 MG QD ORAL)
     Route: 048
     Dates: start: 20101125, end: 20101128

REACTIONS (2)
  - RED BLOOD CELL COUNT DECREASED [None]
  - HEPATIC FUNCTION ABNORMAL [None]
